FAERS Safety Report 7876488-0 (Version None)
Quarter: 2011Q4

REPORT INFORMATION
  Report Type: 
  Country: None (occurrence: None)
  Receive Date: 20111031
  Receipt Date: 20111018
  Transmission Date: 20120403
  Serious: Yes (Other)
  Sender: FDA-Public Use
  Company Number: PHHY2011MX92480

PATIENT
  Sex: Male

DRUGS (1)
  1. EXELON [Suspect]
     Indication: DEMENTIA ALZHEIMER'S TYPE
     Dosage: UNK UKN, UNK
     Dates: start: 20110920

REACTIONS (3)
  - CONCOMITANT DISEASE AGGRAVATED [None]
  - CEREBROVASCULAR ACCIDENT [None]
  - EMBOLISM [None]
